FAERS Safety Report 10102038 (Version 3)
Quarter: 2014Q2

REPORT INFORMATION
  Report Type: Spontaneous
  Country: BR (occurrence: BR)
  Receive Date: 20140424
  Receipt Date: 20140425
  Transmission Date: 20141212
  Serious: Yes (Other)
  Sender: FDA-Public Use
  Company Number: BR-SA-2013SA127489

PATIENT
  Age: 38 Year
  Sex: Female

DRUGS (3)
  1. CLEXANE [Suspect]
     Indication: HYPERCOAGULATION
     Dosage: DOSE- 1 SYRINGE DAILY
     Route: 058
     Dates: start: 20131122
  2. CLEXANE [Suspect]
     Indication: HYPERCOAGULATION
     Dosage: DOSAGE:1 SYRINGE
     Route: 058
     Dates: end: 20140215
  3. RANITIDINE [Concomitant]
     Indication: GASTRITIS
     Route: 048
     Dates: start: 201306

REACTIONS (6)
  - Gestational diabetes [Unknown]
  - Contusion [Recovered/Resolved]
  - Varicose veins pelvic [Unknown]
  - Application site pain [Recovered/Resolved]
  - Haemorrhage [Unknown]
  - Exposure during pregnancy [Unknown]
